FAERS Safety Report 11857912 (Version 1)
Quarter: 2015Q4

REPORT INFORMATION
  Report Type: Spontaneous
  Country: AT (occurrence: AT)
  Receive Date: 20151222
  Receipt Date: 20151222
  Transmission Date: 20160305
  Serious: Yes (Other)
  Sender: FDA-Public Use
  Company Number: AT-GILEAD-2015-0188697

PATIENT
  Sex: Male

DRUGS (2)
  1. DIRECT ACTING ANTIVIRALS [Concomitant]
     Active Substance: UNSPECIFIED INGREDIENT
     Indication: ANTIVIRAL TREATMENT
     Route: 065
  2. SOFOSBUVIR [Suspect]
     Active Substance: SOFOSBUVIR
     Indication: PRODUCT USED FOR UNKNOWN INDICATION
     Route: 065

REACTIONS (1)
  - Hepatocellular carcinoma [Unknown]
